FAERS Safety Report 8559201 (Version 4)
Quarter: 2012Q4

REPORT INFORMATION
  Report Type: 
  Country: US (occurrence: US)
  Receive Date: 20120511
  Receipt Date: 20120824
  Transmission Date: 20130627
  Serious: Yes (Hospitalization, Other)
  Sender: FDA-Public Use
  Company Number: US-ELI_LILLY_AND_COMPANY-US201203006904

PATIENT
  Age: 62 None
  Sex: Female
  Weight: 86.17 kg

DRUGS (17)
  1. FORTEO [Suspect]
     Indication: OSTEOPOROSIS POSTMENOPAUSAL
     Dosage: 20 ug, qd
     Route: 058
     Dates: start: 20120208
  2. FORTEO [Suspect]
     Dosage: 20 ug, qd
     Route: 058
     Dates: end: 20120404
  3. FORTEO [Suspect]
     Dosage: 20 ug, qd
     Route: 058
     Dates: start: 20120527
  4. CRESTOR [Concomitant]
  5. LOVAZA [Concomitant]
  6. METFORMIN HCL [Concomitant]
     Dosage: 500 mg, bid
  7. NEXIUM [Concomitant]
     Dosage: 40 mg, qd
  8. LOSARTAN POTASSIUM W/HYDROCHLOROTHIAZIDE [Concomitant]
  9. SINGULAIR [Concomitant]
  10. LEVOTHYROXINE [Concomitant]
  11. VITAMIN D NOS [Concomitant]
     Dosage: 6000 IU, UNK
  12. CALCIUM CITRATE [Concomitant]
     Dosage: 600 mg, UNK
  13. ALLEGRA [Concomitant]
     Dosage: 180 mg, UNK
  14. FISH OIL [Concomitant]
  15. NASONEX [Concomitant]
  16. BIOFLEX                            /00943602/ [Concomitant]
  17. CORTISONE [Concomitant]

REACTIONS (3)
  - Impaired healing [Recovered/Resolved]
  - Osteonecrosis [Recovered/Resolved]
  - Hepatic enzyme increased [Recovered/Resolved]
